FAERS Safety Report 19037194 (Version 1)
Quarter: 2021Q1

REPORT INFORMATION
  Report Type: Spontaneous
  Country: US (occurrence: US)
  Receive Date: 20210320
  Receipt Date: 20210320
  Transmission Date: 20210420
  Serious: No
  Sender: FDA-Public Use
  Company Number: None

PATIENT
  Age: 69 Year
  Sex: Female

DRUGS (1)
  1. PRALUENT [Suspect]
     Active Substance: ALIROCUMAB
     Dosage: FREQUENCY: OTHER
     Route: 058
     Dates: start: 20200727

REACTIONS (3)
  - Device malfunction [None]
  - Product dose omission issue [None]
  - Wrong technique in product usage process [None]

NARRATIVE: CASE EVENT DATE: 20210320
